FAERS Safety Report 24121395 (Version 1)
Quarter: 2024Q3

REPORT INFORMATION
  Report Type: Spontaneous
  Country: CA (occurrence: CA)
  Receive Date: 20240722
  Receipt Date: 20240722
  Transmission Date: 20241016
  Serious: Yes (Other)
  Sender: ANI
  Company Number: CA-ANIPHARMA-2020-CA-001572

PATIENT
  Age: 57 Year
  Sex: Female

DRUGS (2)
  1. CANDESARTAN [Suspect]
     Active Substance: CANDESARTAN
     Indication: Migraine
     Dosage: 16 MG UNK
     Route: 048
     Dates: start: 20180504
  2. TOPIRAMATE [Suspect]
     Active Substance: TOPIRAMATE
     Dates: start: 201907

REACTIONS (5)
  - Cerebral haemorrhage [Unknown]
  - Multiple sclerosis [Unknown]
  - Drug ineffective for unapproved indication [Unknown]
  - Headache [Unknown]
  - Product use in unapproved indication [Not Recovered/Not Resolved]

NARRATIVE: CASE EVENT DATE: 20180504
